FAERS Safety Report 18286946 (Version 4)
Quarter: 2021Q1

REPORT INFORMATION
  Report Type: Spontaneous
  Country: US (occurrence: US)
  Receive Date: 20200921
  Receipt Date: 20210105
  Transmission Date: 20210419
  Serious: Yes (Death, Hospitalization, Other)
  Sender: FDA-Public Use
  Company Number: US-AUROBINDO-AUR-APL-2020-048101

PATIENT
  Age: 80 Year
  Sex: Female
  Weight: 100 kg

DRUGS (4)
  1. AMLODIPINE [Concomitant]
     Active Substance: AMLODIPINE BESYLATE
     Indication: BLOOD PRESSURE MEASUREMENT
     Dosage: UNK
     Route: 065
  2. VIMPAT [Concomitant]
     Active Substance: LACOSAMIDE
     Indication: SEIZURE
     Dosage: 50 MILLIGRAM, TWO TIMES A DAY
     Route: 065
  3. TRIMETHOPRIM+SULFAMETHOXAZOLE TABLET [Suspect]
     Active Substance: SULFAMETHOXAZOLE\TRIMETHOPRIM
     Dosage: 1 DOSAGE FORM, TWO TIMES A DAY
     Route: 048
     Dates: start: 20200319, end: 20200327
  4. TRIMETHOPRIM+SULFAMETHOXAZOLE TABLET [Suspect]
     Active Substance: SULFAMETHOXAZOLE\TRIMETHOPRIM
     Indication: URINARY TRACT INFECTION
     Dosage: UNK
     Route: 065
     Dates: start: 20200228

REACTIONS (10)
  - Acute kidney injury [Fatal]
  - Weight decreased [Unknown]
  - Dysphagia [Unknown]
  - Blood creatinine increased [Fatal]
  - Diarrhoea [Unknown]
  - Skin discolouration [Unknown]
  - Dehydration [Unknown]
  - Drug ineffective [Unknown]
  - Urine output decreased [Fatal]
  - Asthenia [Unknown]

NARRATIVE: CASE EVENT DATE: 20200319
